FAERS Safety Report 5739094-X (Version None)
Quarter: 2008Q2

REPORT INFORMATION
  Report Type: 
  Country: None (occurrence: None)
  Receive Date: 20080515
  Receipt Date: 20080514
  Transmission Date: 20081010
  Serious: Yes (Hospitalization, Other)
  Sender: FDA-Public Use
  Company Number: US-BAYER-200813648NA

PATIENT
  Age: 18 Year
  Sex: Male
  Weight: 107 kg

DRUGS (3)
  1. AVELOX [Suspect]
     Indication: SINUSITIS
     Dosage: TOTAL DAILY DOSE: 400 MG  UNIT DOSE: 400 MG
     Route: 048
     Dates: start: 20080127, end: 20080204
  2. DILANTIN [Concomitant]
     Dates: start: 20080205
  3. TOPAMAX [Concomitant]
     Dates: start: 20080212

REACTIONS (1)
  - GRAND MAL CONVULSION [None]
